FAERS Safety Report 8602717 (Version 5)
Quarter: 2013Q1

REPORT INFORMATION
  Report Type: Report from Study
  Country: ES (occurrence: ES)
  Receive Date: 20120607
  Receipt Date: 20130115
  Transmission Date: 20140127
  Serious: Yes (Hospitalization)
  Sender: FDA-Public Use
  Company Number: ES-AMGEN-ESPCT2012034969

PATIENT
  Age: 47 Year
  Sex: Female
  Weight: 70 kg

DRUGS (9)
  1. PANITUMUMAB [Suspect]
     Indication: ANAL CANCER
     Dosage: 420 MG, Q2WK
     Route: 042
     Dates: start: 20120430
  2. 5-FU [Concomitant]
     Dosage: 6920 MG, Q2WK
     Route: 042
     Dates: start: 20120430
  3. MITOMYCIN C [Concomitant]
     Dosage: 17.3 MG, Q2WK
     Route: 042
     Dates: start: 20120430
  4. AUGMENTIN [Concomitant]
     Indication: SKIN TOXICITY
     Dosage: 500 MG, Q8H
     Route: 048
     Dates: start: 20120528, end: 20120531
  5. AUGMENTIN [Concomitant]
     Indication: RASH
  6. AUGMENTIN [Concomitant]
     Indication: ANAL ULCER
  7. METHYLPREDNISOLONE [Concomitant]
     Indication: SKIN TOXICITY
     Dosage: 8 MG, Q8H
     Route: 048
     Dates: start: 20120528, end: 20120531
  8. METHYLPREDNISOLONE [Concomitant]
     Indication: RASH
  9. METHYLPREDNISOLONE [Concomitant]
     Indication: ANAL ULCER

REACTIONS (3)
  - Perineal pain [Recovered/Resolved]
  - Febrile neutropenia [Recovered/Resolved]
  - Enteritis [Recovered/Resolved]
